FAERS Safety Report 16262436 (Version 1)
Quarter: 2019Q2

REPORT INFORMATION
  Report Type: Spontaneous
  Country: CN (occurrence: CN)
  Receive Date: 20190501
  Receipt Date: 20190501
  Transmission Date: 20190711
  Serious: Yes (Other)
  Sender: FDA-Public Use
  Company Number: CN-BAXTER-2019BAX008350

PATIENT
  Age: 58 Year
  Sex: Female
  Weight: 58 kg

DRUGS (4)
  1. PHARMORUBICIN RD [Suspect]
     Active Substance: EPIRUBICIN
     Indication: BREAST CANCER FEMALE
     Dosage: 1ST CHEMOTHERAPY, EPIRUBICIN HYDROCHLORIDE FOR INJECTION 135 MG + NS 100 ML
     Route: 041
     Dates: start: 20190225, end: 20190225
  2. 0.9% SODIUM CHLORIDE INJECTION [Suspect]
     Active Substance: SODIUM CHLORIDE
     Indication: MEDICATION DILUTION
     Dosage: CYCLOPHOSPHAMIDE FOR INJECTION 900 MG + NS 45 ML, 1ST CHEMOTHERAPY
     Route: 041
     Dates: start: 20190225, end: 20190225
  3. 0.9% SODIUM CHLORIDE INJECTION [Suspect]
     Active Substance: SODIUM CHLORIDE
     Dosage: EPIRUBICIN HYDROCHLORIDE FOR INJECTION (PHARMORUBICIN RD) 135 MG + NS 100 ML, 1ST CHEMOTHERAPY
     Route: 041
     Dates: start: 20190225, end: 20190225
  4. ENDOXAN [Suspect]
     Active Substance: CYCLOPHOSPHAMIDE
     Indication: BREAST CANCER FEMALE
     Dosage: CYCLOPHOSPHAMIDE FOR INJECTION 900 MG + NS 45 ML, 1ST CHEMOTHERAPY
     Route: 041
     Dates: start: 20190225, end: 20190225

REACTIONS (2)
  - Leukopenia [Recovered/Resolved]
  - Agranulocytosis [Recovered/Resolved]

NARRATIVE: CASE EVENT DATE: 20190308
